FAERS Safety Report 11031303 (Version 9)
Quarter: 2017Q4

REPORT INFORMATION
  Report Type: Spontaneous
  Country: US (occurrence: US)
  Receive Date: 20150415
  Receipt Date: 20171025
  Transmission Date: 20180320
  Serious: No
  Sender: FDA-Public Use
  Company Number: US-PFIZER INC-2015126365

PATIENT
  Sex: Female

DRUGS (11)
  1. MORPHINE SULFATE. [Suspect]
     Active Substance: MORPHINE SULFATE
     Dosage: UNK
  2. TESSALON [Suspect]
     Active Substance: BENZONATATE
     Dosage: UNK
  3. QUINIDINE [Suspect]
     Active Substance: QUINIDINE
     Dosage: UNK
  4. TUSSIONEX PENNKINETIC [Suspect]
     Active Substance: CHLORPHENIRAMINE\HYDROCODONE
     Dosage: UNK
  5. CLEOCIN [Suspect]
     Active Substance: CLINDAMYCIN PHOSPHATE
     Dosage: UNK
  6. DEMEROL [Suspect]
     Active Substance: MEPERIDINE HYDROCHLORIDE
     Dosage: UNK
  7. ZITHROMAX [Suspect]
     Active Substance: AZITHROMYCIN DIHYDRATE
     Dosage: UNK
  8. AVELOX [Suspect]
     Active Substance: MOXIFLOXACIN HYDROCHLORIDE
     Dosage: UNK
  9. DARVOCET [Suspect]
     Active Substance: ACETAMINOPHEN\PROPOXYPHENE HYDROCHLORIDE
     Dosage: UNK
  10. REGLAN [Suspect]
     Active Substance: METOCLOPRAMIDE HYDROCHLORIDE
     Dosage: UNK
  11. QUININE SULFATE. [Suspect]
     Active Substance: QUININE SULFATE
     Dosage: UNK

REACTIONS (5)
  - Palpitations [Unknown]
  - Diarrhoea [Unknown]
  - Drug hypersensitivity [Unknown]
  - Nausea [Unknown]
  - Drug intolerance [Unknown]
